FAERS Safety Report 16627324 (Version 7)
Quarter: 2022Q1

REPORT INFORMATION
  Report Type: Spontaneous
  Country: US (occurrence: US)
  Receive Date: 20190724
  Receipt Date: 20220329
  Transmission Date: 20220423
  Serious: Yes (Hospitalization, Other)
  Sender: FDA-Public Use
  Company Number: US-BIOCODEX2-201900779

PATIENT

DRUGS (12)
  1. DIACOMIT [Suspect]
     Active Substance: STIRIPENTOL
     Indication: Severe myoclonic epilepsy of infancy
     Dosage: 600 MG, QD (500MG OF DIACOMIT WAS DISSOLVED IN 20ML OF WATER. THE PATIENT TOOK 12ML (300MG) TWICE A
     Route: 048
     Dates: start: 20190530
  2. DIACOMIT [Suspect]
     Active Substance: STIRIPENTOL
     Dosage: 1000 MG, QD (500MG TWICE A DAY.)
     Route: 048
  3. DIACOMIT [Suspect]
     Active Substance: STIRIPENTOL
     Dosage: UNK UNK, QD (15ML TWICE DAILY.)
     Route: 048
  4. DIACOMIT [Suspect]
     Active Substance: STIRIPENTOL
     Dosage: UNK UNK, QD (16ML TWICE DAILY.)
     Route: 048
     Dates: start: 20200121
  5. DIACOMIT [Suspect]
     Active Substance: STIRIPENTOL
     Dosage: 1000 MG, QD (2 PACKETS OF 250MG TWICE DAILY.)
  6. DIACOMIT [Suspect]
     Active Substance: STIRIPENTOL
     Dosage: 500 MG, QD (250 MG TWICE DAILY)
     Route: 065
  7. DIACOMIT [Suspect]
     Active Substance: STIRIPENTOL
     Dosage: 1000 MG, QD (2 PACKETS OF 250MG IN 20ML OF WATER AND GIVE IT TWICE DAILY)
     Route: 048
     Dates: start: 20190530
  8. ONFI [Concomitant]
     Active Substance: CLOBAZAM
     Indication: Severe myoclonic epilepsy of infancy
     Dosage: 15 MG, QD (7.5 MG TWICE DAILY)
     Route: 065
  9. KEPPRA [Concomitant]
     Active Substance: LEVETIRACETAM
     Indication: Product used for unknown indication
     Route: 065
  10. ZONISAMIDE [Concomitant]
     Active Substance: ZONISAMIDE
     Indication: Product used for unknown indication
     Dosage: 175 MG, QD (75 MG IN THE MORNING AND 100 MG AT BEDTIME)
     Route: 065
  11. BRIVIACT [Concomitant]
     Active Substance: BRIVARACETAM
     Indication: Product used for unknown indication
     Dosage: 40 MG, QD (20 MG TWICE DAILY)
  12. FINTEPLA [Concomitant]
     Active Substance: FENFLURAMINE
     Indication: Product used for unknown indication
     Route: 065

REACTIONS (2)
  - Seizure [Unknown]
  - Dysuria [Unknown]
